FAERS Safety Report 8127439-5 (Version None)
Quarter: 2011Q4

REPORT INFORMATION
  Report Type: 
  Country: None (occurrence: None)
  Receive Date: 20111227
  Receipt Date: 20111109
  Transmission Date: 20120403
  Serious: No
  Sender: FDA-Public Use
  Company Number: PHEH2011US01610

PATIENT
  Age: 48 Year
  Sex: Female
  Weight: 65 kg

DRUGS (7)
  1. GABAPENTIN [Concomitant]
  2. GILENYA [Suspect]
     Indication: MULTIPLE SCLEROSIS
     Dosage: 0.5 MG, QD, ORAL
     Route: 048
     Dates: start: 20110401
  3. PRISTIQ [Concomitant]
  4. IBUPROFEN [Concomitant]
  5. BACLOFEN [Concomitant]
  6. FLEXERIL [Concomitant]
  7. ZOLPIDEM [Concomitant]

REACTIONS (8)
  - ABDOMINAL PAIN [None]
  - HEART RATE DECREASED [None]
  - SOMNOLENCE [None]
  - NAUSEA [None]
  - ALOPECIA [None]
  - INSOMNIA [None]
  - ENERGY INCREASED [None]
  - VERTIGO [None]
